FAERS Safety Report 7459727-X (Version None)
Quarter: 2011Q2

REPORT INFORMATION
  Report Type: 
  Country: None (occurrence: None)
  Receive Date: 20110505
  Receipt Date: 20110421
  Transmission Date: 20111010
  Serious: Yes (Hospitalization)
  Sender: FDA-Public Use
  Company Number: PHHY2011DE34396

PATIENT
  Age: 43 Year
  Sex: Female

DRUGS (2)
  1. ELIDEL [Suspect]
     Route: 061
  2. THYROID HORMONES [Concomitant]

REACTIONS (3)
  - BREAST CANCER [None]
  - METASTASES TO LYMPH NODES [None]
  - ACCIDENTAL EXPOSURE [None]
